FAERS Safety Report 14869224 (Version 5)
Quarter: 2018Q2

REPORT INFORMATION
  Report Type: Spontaneous
  Country: US (occurrence: US)
  Receive Date: 20180509
  Receipt Date: 20180626
  Transmission Date: 20180711
  Serious: Yes (Other)
  Sender: FDA-Public Use
  Company Number: US-GLAXOSMITHKLINE-US2018076461

PATIENT
  Sex: Female
  Weight: 60.77 kg

DRUGS (1)
  1. ADVAIR DISKUS [Suspect]
     Active Substance: FLUTICASONE PROPIONATE\SALMETEROL XINAFOATE
     Indication: ASTHMA
     Dosage: UNK
     Route: 055
     Dates: start: 20171208, end: 20180502

REACTIONS (16)
  - Heart rate increased [Unknown]
  - Somnolence [Recovering/Resolving]
  - Loss of consciousness [Unknown]
  - Sensory overload [Recovered/Resolved]
  - Dizziness [Recovered/Resolved]
  - Feeling abnormal [Recovered/Resolved]
  - Asthenia [Unknown]
  - Product quality issue [Unknown]
  - Malaise [Recovered/Resolved]
  - Overdose [Unknown]
  - Tachycardia [Unknown]
  - Dysphemia [Recovered/Resolved]
  - Fatigue [Recovering/Resolving]
  - Headache [Unknown]
  - Tremor [Recovered/Resolved]
  - Palpitations [Recovered/Resolved]
